FAERS Safety Report 25444988 (Version 2)
Quarter: 2025Q3

REPORT INFORMATION
  Report Type: Report from Study
  Country: US (occurrence: US)
  Receive Date: 20250617
  Receipt Date: 20250901
  Transmission Date: 20251021
  Serious: No
  Sender: SUNOVION
  Company Number: US-SUMITOMO PHARMA SWITZERLAND GMBH-2025SPA006439

PATIENT
  Age: 68 Year
  Sex: Male

DRUGS (4)
  1. ORGOVYX [Suspect]
     Active Substance: RELUGOLIX
     Indication: Prostate cancer
     Route: 048
  2. ORGOVYX [Suspect]
     Active Substance: RELUGOLIX
     Dosage: 120 MG, QD
     Route: 048
     Dates: start: 20250411
  3. NUBEQA [Concomitant]
     Active Substance: DAROLUTAMIDE
  4. FLOMAX [Concomitant]
     Active Substance: TAMSULOSIN HYDROCHLORIDE

REACTIONS (10)
  - Fall [Unknown]
  - Clumsiness [Unknown]
  - Anxiety [Unknown]
  - Back pain [Unknown]
  - Myalgia [Unknown]
  - Fatigue [Unknown]
  - Hot flush [Recovered/Resolved]
  - Weight increased [Not Recovered/Not Resolved]
  - Asthenia [Unknown]
  - Product dose omission issue [Recovered/Resolved]
